FAERS Safety Report 7181172-5 (Version None)
Quarter: 2010Q4

REPORT INFORMATION
  Report Type: 
  Country: None (occurrence: None)
  Receive Date: 20101221
  Receipt Date: 20101217
  Transmission Date: 20110411
  Serious: Yes (Other)
  Sender: FDA-Public Use
  Company Number: PT-PFIZER INC-2010171067

PATIENT
  Age: 48 Year
  Sex: Male

DRUGS (9)
  1. CHAMPIX [Suspect]
     Indication: SMOKING CESSATION THERAPY
     Dosage: 0.5 MG, 1X/DAY
     Route: 048
     Dates: start: 20101121, end: 20101123
  2. CHAMPIX [Suspect]
     Dosage: 0.5 MG, 2X/DAY
     Route: 048
     Dates: start: 20101124, end: 20101127
  3. CHAMPIX [Suspect]
     Dosage: 1 MG, 2X/DAY
     Route: 048
     Dates: start: 20101128, end: 20101201
  4. ZARATOR ^PFIZER^ [Concomitant]
     Dosage: 20 MG, 1X/DAY
     Route: 048
     Dates: start: 20101101
  5. CLOPIDOGREL [Concomitant]
     Dosage: 75 MG, 1X/DAY
     Route: 048
     Dates: start: 20101101
  6. TROMALYT [Concomitant]
     Dosage: 75 MG, 1X/DAY
     Route: 048
     Dates: start: 20101101
  7. PERINDOPRIL ERBUMINE [Concomitant]
     Dosage: 5 MG, 1X/DAY
     Route: 048
     Dates: start: 20101101
  8. CARVEDILOL [Concomitant]
     Dosage: 25 MG, 2X/DAY
     Route: 048
     Dates: start: 20101101
  9. OMEPRAZOLE [Concomitant]
     Dosage: 20 MG, 1X/DAY
     Route: 048
     Dates: start: 20101101

REACTIONS (3)
  - ABDOMINAL DISCOMFORT [None]
  - DEHYDRATION [None]
  - DIARRHOEA [None]
